FAERS Safety Report 5060467-5 (Version None)
Quarter: 2006Q3

REPORT INFORMATION
  Report Type: 
  Country: None (occurrence: None)
  Receive Date: 20060721
  Receipt Date: 20060721
  Transmission Date: 20061208
  Serious: Yes (Other)
  Sender: FDA-Public Use
  Company Number: None

PATIENT
  Age: 82 Year
  Sex: Male
  Weight: 99.7913 kg

DRUGS (9)
  1. CENTRUM SILVER WYETH CONSUMER [Suspect]
     Indication: ENERGY INCREASED
     Dosage: 1 DAILY PO
     Route: 048
     Dates: start: 20060705, end: 20060712
  2. AVANDIA [Concomitant]
  3. INDERAL LA [Concomitant]
  4. PRAVACHOL [Concomitant]
  5. ACCURETIC [Concomitant]
  6. B12 [Concomitant]
  7. ASPIRIN [Concomitant]
  8. GLIPIZIDE [Concomitant]
  9. SKELAXIN [Concomitant]

REACTIONS (2)
  - PHARMACEUTICAL PRODUCT COMPLAINT [None]
  - URTICARIA [None]
